FAERS Safety Report 9982848 (Version 1)
Quarter: 2014Q1

REPORT INFORMATION
  Report Type: Spontaneous
  Country: US (occurrence: None)
  Receive Date: 20140306
  Receipt Date: 20140306
  Transmission Date: 20141002
  Serious: Yes (Other)
  Sender: FDA-Public Use
  Company Number: None

PATIENT
  Age: 26 Year
  Sex: Female

DRUGS (1)
  1. MAKENA 250MG PER ML THER-RX [Suspect]
     Indication: PREMATURE DELIVERY
     Route: 030
     Dates: start: 20140204

REACTIONS (3)
  - Hypotension [None]
  - Heart rate abnormal [None]
  - Peripheral coldness [None]
